FAERS Safety Report 16985293 (Version 1)
Quarter: 2019Q4

REPORT INFORMATION
  Report Type: Spontaneous
  Country: US (occurrence: US)
  Receive Date: 20190917
  Receipt Date: 20190917
  Transmission Date: 20200122
  Serious: No
  Sender: FDA-Public Use
  Company Number: None

PATIENT
  Age: 53 Year
  Sex: Female
  Weight: 84 kg

DRUGS (1)
  1. VARENICLINE [Suspect]
     Active Substance: VARENICLINE
     Indication: EX-TOBACCO USER
     Route: 048
     Dates: start: 20190514, end: 20190911

REACTIONS (1)
  - Depression [None]

NARRATIVE: CASE EVENT DATE: 20190911
